FAERS Safety Report 10191005 (Version 1)
Quarter: 2014Q2

REPORT INFORMATION
  Report Type: Report from Study
  Country: US (occurrence: US)
  Receive Date: 20140523
  Receipt Date: 20140523
  Transmission Date: 20141212
  Serious: Yes (Other)
  Sender: FDA-Public Use
  Company Number: US-ROCHE-1405524

PATIENT
  Sex: Male
  Weight: 49.5 kg

DRUGS (1)
  1. NUTROPIN AQ [Suspect]
     Indication: GROWTH HORMONE DEFICIENCY
     Route: 058

REACTIONS (4)
  - Migraine [Unknown]
  - Blood alkaline phosphatase increased [Unknown]
  - Scoliosis [Unknown]
  - Drug dose omission [Unknown]
